FAERS Safety Report 11769384 (Version 1)
Quarter: 2015Q4

REPORT INFORMATION
  Report Type: Spontaneous
  Country: US (occurrence: US)
  Receive Date: 20151123
  Receipt Date: 20151123
  Transmission Date: 20160304
  Serious: No
  Sender: FDA-Public Use
  Company Number: US-BAYER-2015-472686

PATIENT
  Sex: Female

DRUGS (16)
  1. METHYLPHENIDATE HYDROCHLORIDE. [Concomitant]
     Active Substance: METHYLPHENIDATE HYDROCHLORIDE
  2. SUMATRIPTAN SUCCINATE. [Concomitant]
     Active Substance: SUMATRIPTAN SUCCINATE
  3. NALOXONE HCL W/ OXYCODONE HCL [Concomitant]
  4. GABAPENTIN. [Concomitant]
     Active Substance: GABAPENTIN
  5. PREDNISOLONE. [Concomitant]
     Active Substance: PREDNISOLONE
  6. BETASERON [Suspect]
     Active Substance: INTERFERON BETA-1B
     Indication: MULTIPLE SCLEROSIS
     Dosage: 0.25 MG, QOD
     Route: 058
     Dates: start: 20150807
  7. ACETAMINOPHEN. [Concomitant]
     Active Substance: ACETAMINOPHEN
  8. CLONAZEPAM. [Concomitant]
     Active Substance: CLONAZEPAM
  9. DIAZEPAM. [Concomitant]
     Active Substance: DIAZEPAM
  10. AMOXICILLIN. [Concomitant]
     Active Substance: AMOXICILLIN
  11. SODIUM CHLORIDE. [Concomitant]
     Active Substance: SODIUM CHLORIDE
  12. SOLU-MEDROL [Concomitant]
     Active Substance: METHYLPREDNISOLONE SODIUM SUCCINATE
  13. TOPIRAMATE. [Concomitant]
     Active Substance: TOPIRAMATE
  14. EPINEPHRINE HYDROCHLORIDE. [Concomitant]
     Active Substance: EPINEPHRINE HYDROCHLORIDE
  15. HYDROCODONE [Concomitant]
     Active Substance: HYDROCODONE
  16. OXYCODONE [Concomitant]
     Active Substance: OXYCODONE

REACTIONS (1)
  - Influenza like illness [None]
